FAERS Safety Report 16702526 (Version 3)
Quarter: 2023Q4

REPORT INFORMATION
  Report Type: Spontaneous
  Country: FR (occurrence: FR)
  Receive Date: 20190814
  Receipt Date: 20231030
  Transmission Date: 20240109
  Serious: Yes (Death, Other)
  Sender: FDA-Public Use
  Company Number: None

PATIENT
  Age: 35 Year
  Sex: Male

DRUGS (2)
  1. RISPERDAL [Interacting]
     Active Substance: RISPERIDONE
     Indication: Product used for unknown indication
     Route: 065
     Dates: start: 20181126
  2. VALPROMIDE [Interacting]
     Active Substance: VALPROMIDE
     Indication: Product used for unknown indication
     Dosage: ADDITIONAL INFO: MISUSE,ABUSE
     Route: 065

REACTIONS (4)
  - Death [Fatal]
  - Intentional product misuse [Fatal]
  - Potentiating drug interaction [Fatal]
  - Product availability issue [Unknown]

NARRATIVE: CASE EVENT DATE: 20181126
